FAERS Safety Report 26087310 (Version 1)
Quarter: 2025Q4

REPORT INFORMATION
  Report Type: Other
  Country: EU (occurrence: EU)
  Receive Date: 20251125
  Receipt Date: 20251125
  Transmission Date: 20260117
  Serious: Yes (Other)
  Sender: EMD SERONO INC
  Company Number: EU-Merck Healthcare KGaA-2025058872

PATIENT
  Sex: Female

DRUGS (1)
  1. LEVOTHYROXINE [Suspect]
     Active Substance: LEVOTHYROXINE
     Indication: Hypothyroidism
     Dosage: DRUG TAKEN BY NEONATE^S MOTHER

REACTIONS (3)
  - Neonatal infection [Unknown]
  - Arachnoid cyst [Unknown]
  - Foetal exposure during pregnancy [Recovered/Resolved]
